FAERS Safety Report 5532851-4 (Version None)
Quarter: 2007Q4

REPORT INFORMATION
  Report Type: 
  Country: None (occurrence: None)
  Receive Date: 20071130
  Receipt Date: 20071130
  Transmission Date: 20080405
  Serious: No
  Sender: FDA-Public Use
  Company Number: None

PATIENT

DRUGS (1)
  1. CYMBALTA [Suspect]
     Indication: DEPRESSION
     Dosage: 2 CAPSULES DAILY PO
     Route: 048
     Dates: start: 20070803, end: 20071128

REACTIONS (2)
  - ABNORMAL DREAMS [None]
  - NIGHTMARE [None]
